FAERS Safety Report 10463479 (Version 1)
Quarter: 2014Q3

REPORT INFORMATION
  Report Type: Spontaneous
  Country: US (occurrence: None)
  Receive Date: 20140918
  Receipt Date: 20140918
  Transmission Date: 20150326
  Serious: Yes (Other)
  Sender: FDA-Public Use
  Company Number: None

PATIENT
  Age: 59 Year
  Sex: Female
  Weight: 55.79 kg

DRUGS (1)
  1. DULCOLAX [Suspect]
     Active Substance: BISACODYL OR DOCUSATE SODIUM
     Indication: CONSTIPATION
     Route: 048
     Dates: start: 20140901, end: 20140914

REACTIONS (7)
  - Head injury [None]
  - Vomiting [None]
  - Product formulation issue [None]
  - Abdominal pain upper [None]
  - Hyperhidrosis [None]
  - Syncope [None]
  - Diarrhoea [None]

NARRATIVE: CASE EVENT DATE: 20140915
